FAERS Safety Report 5632964-2 (Version None)
Quarter: 2008Q1

REPORT INFORMATION
  Report Type: 
  Country: None (occurrence: None)
  Receive Date: 20080221
  Receipt Date: 20080215
  Transmission Date: 20080703
  Serious: Yes (Other)
  Sender: FDA-Public Use
  Company Number: PHBS2008PR02244

PATIENT
  Age: 22 Year
  Sex: Male

DRUGS (2)
  1. GABAPENTIN [Concomitant]
     Indication: EPILEPSY
  2. OXCARBAZEPINE [Suspect]
     Indication: EPILEPSY

REACTIONS (5)
  - CUTANEOUS LARVA MIGRANS [None]
  - HOOKWORM INFECTION [None]
  - PRURITUS [None]
  - RASH PAPULAR [None]
  - WOUND INFECTION [None]
